FAERS Safety Report 9086158 (Version 1)
Quarter: 2013Q1

REPORT INFORMATION
  Report Type: Spontaneous
  Country: BR (occurrence: BR)
  Receive Date: 20130131
  Receipt Date: 20130131
  Transmission Date: 20140127
  Serious: Yes (Hospitalization)
  Sender: FDA-Public Use
  Company Number: BR-MERCK-1301BRA013737

PATIENT
  Sex: Male

DRUGS (2)
  1. MK-4031 [Suspect]
     Indication: HEPATITIS C
     Dosage: 150 MICROGRAM, QW
     Route: 058
     Dates: start: 2010
  2. RIBAVIRIN [Concomitant]
     Indication: HEPATITIS C
     Dosage: 1000 MG, QD
     Route: 048
     Dates: start: 2010

REACTIONS (3)
  - Oesophageal variceal ligation [Recovered/Resolved]
  - Hepatic cirrhosis [Unknown]
  - Hepatitis C [Unknown]
